FAERS Safety Report 8723509 (Version 2)
Quarter: 2013Q4

REPORT INFORMATION
  Report Type: Spontaneous
  Country: US (occurrence: US)
  Receive Date: 20120814
  Receipt Date: 20131101
  Transmission Date: 20140711
  Serious: No
  Sender: FDA-Public Use
  Company Number: US-009507513-1208USA003050

PATIENT
  Age: 58 Year
  Sex: Female

DRUGS (3)
  1. PEGINTRON [Suspect]
     Indication: HEPATITIS C
     Dosage: UNK
     Route: 058
     Dates: start: 20120731
  2. RIBASPHERE [Suspect]
  3. RIBAPAK [Suspect]

REACTIONS (6)
  - Headache [Recovering/Resolving]
  - Fatigue [Unknown]
  - Incorrect product storage [Unknown]
  - Injection site erythema [Unknown]
  - Fear [Unknown]
  - Therapeutic response decreased [Unknown]
